FAERS Safety Report 24753577 (Version 1)
Quarter: 2024Q4

REPORT INFORMATION
  Report Type: Spontaneous
  Country: DE (occurrence: DE)
  Receive Date: 20241219
  Receipt Date: 20241219
  Transmission Date: 20250115
  Serious: Yes (Hospitalization, Other)
  Sender: ANI
  Company Number: DE-ANIPHARMA-2024-DE-000147

PATIENT
  Sex: Female

DRUGS (19)
  1. ANASTROZOLE [Suspect]
     Active Substance: ANASTROZOLE
     Indication: Breast cancer
     Dosage: 1 MILLIGRAM, QD
     Route: 048
     Dates: start: 20220916, end: 20231005
  2. XGEVA [Concomitant]
     Active Substance: DENOSUMAB
     Dates: start: 20220916
  3. Novalgin [Concomitant]
     Dates: start: 20221019
  4. NORSPAN [Concomitant]
     Active Substance: BUPRENORPHINE
     Dates: start: 20221021
  5. CELEBREX [Concomitant]
     Active Substance: CELECOXIB
     Dates: start: 202210
  6. FOLIC ACID [Concomitant]
     Active Substance: FOLIC ACID
  7. PANTOZOL [Concomitant]
     Active Substance: PANTOPRAZOLE SODIUM
     Dates: start: 202210
  8. XARELTO [Concomitant]
     Active Substance: RIVAROXABAN
     Dates: start: 202210
  9. LOPERAMIDE [Concomitant]
     Active Substance: LOPERAMIDE
     Dates: start: 20231006
  10. OXYBUTYNIN [Concomitant]
     Active Substance: OXYBUTYNIN
     Dates: start: 20240713
  11. MCP [Concomitant]
     Active Substance: METOCLOPRAMIDE HYDROCHLORIDE
     Dates: start: 20240813
  12. LYNPARZA [Suspect]
     Active Substance: OLAPARIB
     Route: 048
  13. PALBOCICLIB [Suspect]
     Active Substance: PALBOCICLIB
     Dosage: 125 MICROGRAM
     Route: 048
     Dates: start: 20220926, end: 20221005
  14. SIMVASTATIN [Suspect]
     Active Substance: SIMVASTATIN
     Dates: start: 20240813
  15. TALZENNA [Suspect]
     Active Substance: TALAZOPARIB TOSYLATE
     Route: 048
     Dates: start: 20240717, end: 20240814
  16. CHOLECALCIFEROL [Concomitant]
     Active Substance: CHOLECALCIFEROL
  17. CITALOPRAM [Concomitant]
     Active Substance: CITALOPRAM
  18. APO HYDROMORPHONE CR [Concomitant]
     Dates: start: 2022
  19. Pregabalin alphapharm [Concomitant]
     Dates: start: 2022

REACTIONS (3)
  - Anaemia [Unknown]
  - Metastases to bone [Unknown]
  - Malignant neoplasm progression [Unknown]
